FAERS Safety Report 4658700-4 (Version None)
Quarter: 2005Q2

REPORT INFORMATION
  Report Type: 
  Country: None (occurrence: None)
  Receive Date: 20050509
  Receipt Date: 20050421
  Transmission Date: 20051028
  Serious: Yes (Hospitalization)
  Sender: FDA-Public Use
  Company Number: DSA_26338_2005

PATIENT
  Sex: Male

DRUGS (4)
  1. TAVOR [Suspect]
     Dosage: DF ONCE PO
     Route: 048
     Dates: start: 20050416, end: 20050416
  2. CARBAMAZEPINE [Suspect]
     Dosage: DF ONCE PO
     Route: 048
     Dates: start: 20050416, end: 20050416
  3. LISINOPRIL [Suspect]
     Dosage: DF ONCE PO
     Route: 048
     Dates: start: 20050416, end: 20050416
  4. PAROXETINE HCL [Suspect]
     Dosage: DF ONCE PO
     Route: 048
     Dates: start: 20050416, end: 20050416

REACTIONS (2)
  - ACCIDENTAL OVERDOSE [None]
  - VOMITING [None]
